FAERS Safety Report 12276803 (Version 1)
Quarter: 2016Q2

REPORT INFORMATION
  Report Type: Spontaneous
  Country: US (occurrence: None)
  Receive Date: 20160415
  Receipt Date: 20160415
  Transmission Date: 20160815
  Serious: Yes (Other)
  Sender: FDA-Public Use
  Company Number: None

PATIENT
  Age: 66 Year
  Sex: Female
  Weight: 90.72 kg

DRUGS (6)
  1. RADIANCE CO Q-10 [Concomitant]
  2. VEGETARIAN GLUCOSAMINE HCL [Concomitant]
  3. EPIPEN [Concomitant]
     Active Substance: EPINEPHRINE
  4. BENADRYL [Concomitant]
     Active Substance: DIPHENHYDRAMINE HYDROCHLORIDE
  5. NATURE MADE MULTI VITAMIN FOR HER 50+ [Concomitant]
  6. IC METFORMIN HCL 500MG TABLET [Suspect]
     Active Substance: METFORMIN HYDROCHLORIDE
     Indication: TYPE 2 DIABETES MELLITUS
     Route: 048
     Dates: start: 20150101, end: 20160403

REACTIONS (13)
  - Urticaria [None]
  - Heavy exposure to ultraviolet light [None]
  - Eye swelling [None]
  - Hypersensitivity [None]
  - Erythema [None]
  - Dry throat [None]
  - Swelling face [None]
  - Skin disorder [None]
  - Throat irritation [None]
  - Dysphagia [None]
  - Local swelling [None]
  - Skin burning sensation [None]
  - Flushing [None]

NARRATIVE: CASE EVENT DATE: 20160411
